FAERS Safety Report 24554468 (Version 1)
Quarter: 2024Q4

REPORT INFORMATION
  Report Type: Spontaneous
  Country: US (occurrence: US)
  Receive Date: 20241028
  Receipt Date: 20241028
  Transmission Date: 20250115
  Serious: Yes (Death)
  Sender: RK PHARMA
  Company Number: US-RK PHARMA, INC-20241000073

PATIENT

DRUGS (5)
  1. METFORMIN HYDROCHLORIDE [Suspect]
     Active Substance: METFORMIN HYDROCHLORIDE
     Indication: Type 2 diabetes mellitus
     Route: 065
  2. LEVOTHYROXINE [Concomitant]
     Active Substance: LEVOTHYROXINE
     Indication: Blood thyroid stimulating hormone increased
     Dosage: 75 MICROGRAM
  3. LEVOTHYROXINE [Concomitant]
     Active Substance: LEVOTHYROXINE
     Dosage: 88 MICROGRAM
  4. CARBOPLATIN [Concomitant]
     Active Substance: CARBOPLATIN
     Indication: Salivary gland cancer stage IV
  5. PACLITAXEL [Concomitant]
     Active Substance: PACLITAXEL
     Indication: Salivary gland cancer stage IV

REACTIONS (1)
  - Hypoglycaemia [Fatal]
